FAERS Safety Report 9418223 (Version 4)
Quarter: 2014Q2

REPORT INFORMATION
  Report Type: Report from Study
  Country: US (occurrence: US)
  Receive Date: 20130724
  Receipt Date: 20140501
  Transmission Date: 20141212
  Serious: Yes (Life-Threatening, Hospitalization)
  Sender: FDA-Public Use
  Company Number: US-US-EMD SERONO, INC.-7210306

PATIENT
  Age: 55 Year
  Sex: Male
  Weight: 104 kg

DRUGS (3)
  1. REBIF [Suspect]
     Indication: RELAPSING-REMITTING MULTIPLE SCLEROSIS
     Route: 058
     Dates: start: 20121217
  2. CARTIA                             /00002701/ [Concomitant]
     Indication: ATRIAL FIBRILLATION
  3. COUMADIN                           /00014802/ [Concomitant]
     Indication: DEEP VEIN THROMBOSIS

REACTIONS (4)
  - Antiphospholipid syndrome [Recovered/Resolved]
  - Multiple sclerosis relapse [Recovering/Resolving]
  - Multiple sclerosis relapse [Recovering/Resolving]
  - Influenza like illness [Recovered/Resolved]
